FAERS Safety Report 5845128-4 (Version None)
Quarter: 2008Q3

REPORT INFORMATION
  Report Type: 
  Country: None (occurrence: None)
  Receive Date: 20080813
  Receipt Date: 20080813
  Transmission Date: 20090109
  Serious: Yes (Other)
  Sender: FDA-Public Use
  Company Number: None

PATIENT
  Age: 29 Year
  Sex: Female
  Weight: 117.9352 kg

DRUGS (4)
  1. BUDEPRION XL 300 [Suspect]
     Indication: ANXIETY
     Dosage: TAKE ONE A DAY
     Dates: start: 20070602, end: 20071111
  2. BUDEPRION XL 300 [Suspect]
     Indication: DEPRESSION
     Dosage: TAKE ONE A DAY
     Dates: start: 20070602, end: 20071111
  3. BUDEPRION XL 300 [Suspect]
     Indication: ANXIETY
     Dosage: TAKE ONE A DAY
     Dates: start: 20080715, end: 20080811
  4. BUDEPRION XL 300 [Suspect]
     Indication: DEPRESSION
     Dosage: TAKE ONE A DAY
     Dates: start: 20080715, end: 20080811

REACTIONS (7)
  - ANXIETY [None]
  - CONDITION AGGRAVATED [None]
  - DEPRESSION [None]
  - DRUG INEFFECTIVE [None]
  - HEART RATE ABNORMAL [None]
  - PALPITATIONS [None]
  - THERAPEUTIC RESPONSE UNEXPECTED WITH DRUG SUBSTITUTION [None]
